FAERS Safety Report 23890076 (Version 1)
Quarter: 2024Q2

REPORT INFORMATION
  Report Type: Spontaneous
  Country: US (occurrence: US)
  Receive Date: 20240523
  Receipt Date: 20240523
  Transmission Date: 20240716
  Serious: Yes (Life-Threatening, Hospitalization, Other)
  Sender: FDA-Public Use
  Company Number: US-PFIZER INC-PV202400066469

PATIENT
  Age: 32 Year
  Sex: Female

DRUGS (2)
  1. RITUXIMAB [Suspect]
     Active Substance: RITUXIMAB
     Indication: Immunosuppression
     Dosage: 1 G, CYCLIC
     Route: 042
  2. RITUXIMAB [Suspect]
     Active Substance: RITUXIMAB
     Indication: Encephalitis autoimmune
     Dosage: 1 G, CYCLIC (THIRD, FOURTH DOSE AND FIFTH DOSE AT 6 MONTHS, 12 MONTHS, AND 18 MONTHS)
     Route: 042

REACTIONS (2)
  - Drug hypersensitivity [Unknown]
  - Off label use [Unknown]
